FAERS Safety Report 9013046 (Version 1)
Quarter: 2013Q1

REPORT INFORMATION
  Report Type: Spontaneous
  Country: US (occurrence: US)
  Receive Date: 20130114
  Receipt Date: 20130114
  Transmission Date: 20140127
  Serious: Yes (Other)
  Sender: FDA-Public Use
  Company Number: US-009507513-1301USA001994

PATIENT
  Sex: Male

DRUGS (9)
  1. SINGULAIR [Suspect]
  2. IBUPROFEN [Suspect]
  3. FOLSAN [Suspect]
     Indication: MATERNAL EXPOSURE DURING PREGNANCY
  4. PRESINOL [Suspect]
  5. SYMBICORT [Suspect]
  6. BEROTEC [Suspect]
  7. THYRONAJOD [Suspect]
  8. CIPRALEX [Suspect]
  9. TOPAMAX [Suspect]

REACTIONS (2)
  - Apraxia [Unknown]
  - Foetal exposure during pregnancy [Unknown]
